FAERS Safety Report 22126453 (Version 1)
Quarter: 2023Q1

REPORT INFORMATION
  Report Type: Other
  Country: BR (occurrence: None)
  Receive Date: 20230322
  Receipt Date: 20230322
  Transmission Date: 20230418
  Serious: No
  Sender: FDA-Public Use
  Company Number: BR-ROCHE-3312210

PATIENT
  Age: 55 Year
  Sex: Male
  Weight: 74 kg

DRUGS (2)
  1. OCREVUS [Suspect]
     Active Substance: OCRELIZUMAB
     Indication: Multiple sclerosis
     Route: 065
     Dates: start: 20220202
  2. OCREVUS [Suspect]
     Active Substance: OCRELIZUMAB
     Indication: Secondary progressive multiple sclerosis

REACTIONS (6)
  - Osteoporosis [Unknown]
  - Urinary tract infection [Recovering/Resolving]
  - COVID-19 [Unknown]
  - Benign neoplasm of thyroid gland [Unknown]
  - Pigmentation disorder [Unknown]
  - Ocular hyperaemia [Recovered/Resolved]

NARRATIVE: CASE EVENT DATE: 20221101
